FAERS Safety Report 9283774 (Version 1)
Quarter: 2013Q2

REPORT INFORMATION
  Report Type: Spontaneous
  Country: US (occurrence: None)
  Receive Date: 20130506
  Receipt Date: 20130506
  Transmission Date: 20140414
  Serious: Yes (Other)
  Sender: FDA-Public Use
  Company Number: SYM-2013-03357

PATIENT
  Age: 27 Year
  Sex: Male

DRUGS (6)
  1. DIASTAT [Suspect]
     Indication: CONVULSION
     Dosage: 20 MG, AS REQUIRED, RECTAL
     Route: 054
  2. ATIVAN [Suspect]
     Indication: CONVULSION
     Dosage: AS REQUIRED
  3. DILANTIN(PHENYTOIN)(PHENYTOIN) [Concomitant]
  4. DEPAKOTE(VALPROATE SEMISODIUM)(VALPROATE SEMISODIUM) [Concomitant]
  5. TRILEPTAL(OXCARBAZEPINE)(OXCARBAZEPINE) [Concomitant]
  6. RISPERIDONE(RISPERIDONE)(RISPERIDONE) [Concomitant]

REACTIONS (1)
  - Drug ineffective [None]
